FAERS Safety Report 6296031-X (Version None)
Quarter: 2009Q3

REPORT INFORMATION
  Report Type: 
  Country: None (occurrence: None)
  Receive Date: 20090804
  Receipt Date: 20090729
  Transmission Date: 20100115
  Serious: Yes (Hospitalization)
  Sender: FDA-Public Use
  Company Number: BR-BAYER-200919810LA

PATIENT
  Age: 26 Year
  Sex: Female
  Weight: 55 kg

DRUGS (4)
  1. YAZ [Suspect]
     Indication: CONTRACEPTION
     Route: 048
     Dates: start: 20070101, end: 20090718
  2. CIPROFLOXACIN [Concomitant]
     Indication: POSTOPERATIVE CARE
     Route: 048
     Dates: start: 20090718
  3. METRONIDAZOL [Concomitant]
     Indication: PAIN
     Route: 048
     Dates: start: 20090701
  4. OMEPRAZOL [Concomitant]
     Indication: PROPHYLAXIS
     Route: 048
     Dates: start: 20090701

REACTIONS (5)
  - AMENORRHOEA [None]
  - CHOLELITHIASIS [None]
  - CYSTITIS [None]
  - DIARRHOEA [None]
  - VOMITING [None]
